FAERS Safety Report 6321672-0 (Version None)
Quarter: 2009Q3

REPORT INFORMATION
  Report Type: 
  Country: None (occurrence: None)
  Receive Date: 20090824
  Receipt Date: 20090817
  Transmission Date: 20100115
  Serious: No
  Sender: FDA-Public Use
  Company Number: US-B.I. PHARMACEUTICALS,INC./RIDGEFIELD-2009-BP-09787BP

PATIENT
  Sex: Male

DRUGS (4)
  1. COMBIVENT [Suspect]
     Indication: CHRONIC OBSTRUCTIVE PULMONARY DISEASE
     Dosage: 8 PUF
     Route: 055
     Dates: start: 19890101, end: 20050101
  2. VITAMIN D [Concomitant]
     Indication: OSTEOPOROSIS
  3. MULTI-VITAMIN [Concomitant]
     Indication: PROPHYLAXIS
  4. FOSAMAX [Concomitant]
     Indication: OSTEOPOROSIS

REACTIONS (2)
  - GASTROOESOPHAGEAL REFLUX DISEASE [None]
  - NIGHTMARE [None]
